FAERS Safety Report 10664905 (Version 4)
Quarter: 2018Q4

REPORT INFORMATION
  Report Type: Spontaneous
  Country: JP (occurrence: JP)
  Receive Date: 20141219
  Receipt Date: 20181012
  Transmission Date: 20190204
  Serious: Yes (Other)
  Sender: FDA-Public Use
  Company Number: JP-UNITED THERAPEUTICS-UNT-2014-012199

PATIENT
  Age: 49 Year
  Sex: Female
  Weight: 92 kg

DRUGS (6)
  1. REMODULIN [Suspect]
     Active Substance: TREPROSTINIL
     Dosage: 0.00175 ?G/KG, CONTINUING
     Route: 058
  2. ADCIRCA [Concomitant]
     Active Substance: TADALAFIL
     Indication: PULMONARY HYPERTENSION
     Dosage: 40 MG, QD
     Route: 048
     Dates: end: 201412
  3. TRACLEER [Concomitant]
     Active Substance: BOSENTAN
     Indication: PULMONARY HYPERTENSION
     Dosage: 125 MG, Q12H
     Route: 048
  4. PROCYLIN [Concomitant]
     Active Substance: BERAPROST SODIUM
     Indication: PULMONARY HYPERTENSION
     Dosage: 40 ?G, Q8H
     Route: 048
     Dates: end: 201412
  5. REMODULIN [Suspect]
     Active Substance: TREPROSTINIL
     Indication: PULMONARY ARTERIAL HYPERTENSION
     Dosage: 9.5 MCL/H
     Route: 058
     Dates: start: 20141201, end: 20141212
  6. REMODULIN [Suspect]
     Active Substance: TREPROSTINIL
     Indication: PULMONARY HYPERTENSION
     Dosage: 15 MCL/H
     Route: 058
     Dates: start: 20141208

REACTIONS (11)
  - Infusion site oedema [Unknown]
  - Metrorrhagia [Unknown]
  - Infusion site erythema [Recovered/Resolved]
  - Cardiac failure [Unknown]
  - Hypotension [Recovered/Resolved]
  - Infusion site infection [Unknown]
  - Loss of consciousness [Recovered/Resolved]
  - Infusion site warmth [Recovered/Resolved]
  - Infusion site pain [Recovered/Resolved]
  - Infusion site induration [Unknown]
  - Product use in unapproved indication [Unknown]

NARRATIVE: CASE EVENT DATE: 20141201
